FAERS Safety Report 20893806 (Version 6)
Quarter: 2023Q1

REPORT INFORMATION
  Report Type: Report from Study
  Country: JP (occurrence: JP)
  Receive Date: 20220531
  Receipt Date: 20230125
  Transmission Date: 20230417
  Serious: Yes (Hospitalization, Other)
  Sender: FDA-Public Use
  Company Number: JP-CHUGAI-2022019295

PATIENT
  Age: 51 Year
  Sex: Female
  Weight: 51.4 kg

DRUGS (24)
  1. BEVACIZUMAB [Suspect]
     Active Substance: BEVACIZUMAB
     Indication: Hormone receptor positive HER2 negative breast cancer
     Route: 041
     Dates: start: 20210929
  2. ATEZOLIZUMAB [Suspect]
     Active Substance: ATEZOLIZUMAB
     Indication: Hormone receptor positive HER2 negative breast cancer
     Dosage: 840 MILLIGRAM, DAY 1, 15
     Route: 041
     Dates: start: 20210929
  3. ATEZOLIZUMAB [Suspect]
     Active Substance: ATEZOLIZUMAB
     Dosage: 840 MILLIGRAM
     Route: 041
     Dates: start: 20211104
  4. PACLITAXEL [Suspect]
     Active Substance: PACLITAXEL
     Indication: Hormone receptor positive HER2 negative breast cancer
     Dosage: 90 MILLIGRAM/SQ. METER, DAY1, 8, 15
     Route: 041
     Dates: start: 20210929
  5. TAPENTADOL HYDROCHLORIDE [Suspect]
     Active Substance: TAPENTADOL HYDROCHLORIDE
     Indication: Tumour pain
     Dosage: 2 DOSAGE FORM, BID
     Route: 048
  6. TAPENTADOL HYDROCHLORIDE [Suspect]
     Active Substance: TAPENTADOL HYDROCHLORIDE
     Dosage: 1 DOSAGE FORM, BID
     Route: 048
  7. HERBALS [Concomitant]
     Active Substance: HERBALS
     Indication: Malaise
     Dosage: UNK UNK, BID
     Route: 048
  8. VOLTAREN [Concomitant]
     Active Substance: DICLOFENAC SODIUM
     Indication: Tumour pain
     Dosage: UNK, UNK, PRN
     Route: 048
  9. CALONAL [Concomitant]
     Active Substance: ACETAMINOPHEN
     Indication: Tumour pain
     Dosage: UNK, UNK, PRN
     Route: 048
  10. LOXOPROFEN SODIUM [Concomitant]
     Active Substance: LOXOPROFEN SODIUM
     Indication: Tumour pain
     Dosage: UNK, PRN
     Route: 048
  11. LOXOPROFEN SODIUM [Concomitant]
     Active Substance: LOXOPROFEN SODIUM
     Indication: Arthralgia
     Dosage: UNK, UNK, PRN
     Route: 061
     Dates: start: 20220316
  12. LOXOPROFEN SODIUM [Concomitant]
     Active Substance: LOXOPROFEN SODIUM
     Indication: Myalgia
  13. REBAMIPIDE [Concomitant]
     Active Substance: REBAMIPIDE
     Indication: Gastritis prophylaxis
     Dosage: UNK, PRN
     Route: 048
  14. AZULENE [SODIUM GUALENATE HYDRATE] [Concomitant]
     Indication: Irrigation therapy
     Dosage: UNK,UNK,  PRN
     Dates: start: 20211006
  15. MAGNESIUM OXIDE [Concomitant]
     Active Substance: MAGNESIUM OXIDE
     Indication: Constipation
     Dosage: 2 DOSAGE FORM, TID
     Route: 048
     Dates: start: 2022
  16. BIO-THREE [Concomitant]
     Active Substance: HERBALS
     Indication: Prophylaxis
     Dosage: 2 DOSAGE FORM, TID
     Route: 048
     Dates: start: 2022
  17. MIYA-BM [Concomitant]
     Active Substance: CLOSTRIDIUM BUTYRICUM SPORES STRAIN M-55
     Indication: Prophylaxis
     Route: 048
     Dates: start: 20220526
  18. CALCIUM CARBONATE\CHOLECALCIFEROL\MAGNESIUM CARBONATE [Concomitant]
     Active Substance: CALCIUM CARBONATE\CHOLECALCIFEROL\MAGNESIUM CARBONATE
     Indication: Metastases to bone
     Dosage: 2 DOSAGE FORM, QD
     Route: 048
  19. URSODIOL [Concomitant]
     Active Substance: URSODIOL
     Indication: Hepatic function abnormal
     Dosage: 200 MILLIGRAM, TID
     Route: 048
     Dates: start: 20211013
  20. AMLODIPINE [Concomitant]
     Active Substance: AMLODIPINE BESYLATE
     Indication: Hypertension
     Dosage: 1 DOSAGE FORM
     Route: 048
     Dates: start: 20211228
  21. LOPERAMIDE HYDROCHLORIDE [Concomitant]
     Active Substance: LOPERAMIDE HYDROCHLORIDE
     Indication: Diarrhoea
     Dosage: UNKN, UNK, PRN
     Route: 048
     Dates: start: 20220202, end: 20220522
  22. DIQUAFOSOL TETRASODIUM [Concomitant]
     Active Substance: DIQUAFOSOL TETRASODIUM
     Indication: Dry eye
     Dosage: UNK, UNK, PRN
     Route: 047
     Dates: start: 20220427
  23. DEXAN VG [Concomitant]
     Indication: Stomatitis
     Dosage: UNK, UNK, PRN
     Route: 061
     Dates: start: 20220511
  24. BEVACIZUMAB [Concomitant]
     Active Substance: BEVACIZUMAB
     Indication: Breast cancer recurrent
     Dosage: 10 MILLIGRAM/KILOGRAM, DAY1, 15
     Route: 042
     Dates: start: 20210929

REACTIONS (3)
  - Constipation [Recovering/Resolving]
  - Metastases to bone [Unknown]
  - COVID-19 [Recovered/Resolved]

NARRATIVE: CASE EVENT DATE: 20220512
